FAERS Safety Report 25682975 (Version 1)
Quarter: 2025Q3

REPORT INFORMATION
  Report Type: Spontaneous
  Country: GB (occurrence: GB)
  Receive Date: 20250814
  Receipt Date: 20250814
  Transmission Date: 20251020
  Serious: Yes (Life-Threatening, Hospitalization, Other)
  Sender: ELI LILLY AND COMPANY
  Company Number: GB-MHRA-WEBRADR-202508111103189430-TVKQY

PATIENT
  Age: 46 Year
  Sex: Male

DRUGS (1)
  1. MOUNJARO [Suspect]
     Active Substance: TIRZEPATIDE
     Indication: Weight control
     Route: 065
     Dates: start: 20240404, end: 20241126

REACTIONS (9)
  - Pancreatitis acute [Recovered/Resolved with Sequelae]
  - Decreased appetite [Unknown]
  - Hypophagia [Unknown]
  - Somnolence [Unknown]
  - Fatigue [Unknown]
  - Crohn^s disease [Unknown]
  - Infection [Unknown]
  - Hypertension [Unknown]
  - Cold sweat [Unknown]

NARRATIVE: CASE EVENT DATE: 20241126
